FAERS Safety Report 13068580 (Version 1)
Quarter: 2016Q4

REPORT INFORMATION
  Report Type: Spontaneous
  Country: US (occurrence: US)
  Receive Date: 20161228
  Receipt Date: 20161228
  Transmission Date: 20170207
  Serious: Yes (Disabling)
  Sender: FDA-Public Use
  Company Number: None

PATIENT
  Age: 54 Year
  Sex: Male
  Weight: 72 kg

DRUGS (6)
  1. ONE-A-DAY NOS [Concomitant]
     Active Substance: MINERALS\VITAMINS
  2. CIPROFLOXACIN. [Suspect]
     Active Substance: CIPROFLOXACIN
     Indication: GASTROINTESTINAL DISORDER
     Dosage: ?          QUANTITY:2 CAPSULE(S);?
     Route: 048
     Dates: start: 20161121, end: 20161126
  3. OMEGA 3 OIL [Concomitant]
  4. TRUVADA [Concomitant]
     Active Substance: EMTRICITABINE\TENOFOVIR DISOPROXIL FUMARATE
  5. FLUVOXAMINE [Concomitant]
     Active Substance: FLUVOXAMINE
  6. PROSCAR [Concomitant]
     Active Substance: FINASTERIDE

REACTIONS (3)
  - Limb injury [None]
  - Joint range of motion decreased [None]
  - Musculoskeletal pain [None]

NARRATIVE: CASE EVENT DATE: 20161130
